FAERS Safety Report 15699071 (Version 3)
Quarter: 2019Q1

REPORT INFORMATION
  Report Type: Spontaneous
  Country: US (occurrence: US)
  Receive Date: 20181207
  Receipt Date: 20190201
  Transmission Date: 20190417
  Serious: Yes (Hospitalization)
  Sender: FDA-Public Use
  Company Number: US-PFIZER INC-2018501889

PATIENT
  Age: 85 Year
  Sex: Female
  Weight: 75 kg

DRUGS (8)
  1. XARELTO [Concomitant]
     Active Substance: RIVAROXABAN
     Indication: ATRIAL FIBRILLATION
     Dosage: 15 MG, 1X/DAY
     Route: 048
  2. LETROZOLE. [Concomitant]
     Active Substance: LETROZOLE
     Indication: BREAST CANCER METASTATIC
     Dosage: 2.5 MG, 1X/DAY (2.5MG TABLET BY MOUTH ONCE A DAY WITH THE IBRANCE)
     Route: 048
     Dates: start: 201708
  3. METOPROGAMMA SUCCINAT [Concomitant]
     Indication: MITRAL VALVE PROLAPSE
     Dosage: 50 MG, 1X/DAY
     Route: 048
  4. TRAMADOL. [Concomitant]
     Active Substance: TRAMADOL
     Indication: PAIN
     Dosage: 50 MG, AS NEEDED
     Route: 048
     Dates: start: 201707
  5. IBRANCE [Suspect]
     Active Substance: PALBOCICLIB
     Indication: BREAST CANCER METASTATIC
     Dosage: 125 MG, CYCLIC (125MG CYCLIC ONCE A DAY; 21 DAYS ON, 7 DAYS OFF)
     Route: 048
     Dates: start: 201708, end: 201810
  6. RYTHMOL [PROPAFENONE] [Concomitant]
     Indication: ATRIAL FIBRILLATION
     Dosage: 325 MG, 2X/DAY
     Route: 048
  7. AMLODIPINE BESYLATE. [Concomitant]
     Active Substance: AMLODIPINE BESYLATE
     Indication: BLOOD PRESSURE ABNORMAL
     Dosage: 5 MG, 1X/DAY
     Route: 048
  8. MAGNESIUM OXIDE. [Concomitant]
     Active Substance: MAGNESIUM OXIDE
     Indication: MAGNESIUM DEFICIENCY
     Dosage: 400 MG, 3X/DAY
     Route: 048

REACTIONS (4)
  - Malaise [Unknown]
  - Influenza [Unknown]
  - Cellulitis [Unknown]
  - Neoplasm progression [Unknown]

NARRATIVE: CASE EVENT DATE: 201810
